FAERS Safety Report 25793587 (Version 2)
Quarter: 2025Q4

REPORT INFORMATION
  Report Type: Spontaneous
  Country: EU (occurrence: EU)
  Receive Date: 20250912
  Receipt Date: 20251020
  Transmission Date: 20260118
  Serious: Yes (Death, Hospitalization, Other)
  Sender: NOVARTIS
  Company Number: EU-002147023-NVSC2025ES142471

PATIENT
  Age: 58 Year
  Sex: Male

DRUGS (3)
  1. LUTATHERA [Suspect]
     Active Substance: LUTETIUM OXODOTREOTIDE LU-177
     Indication: Neuroendocrine tumour
     Dosage: UNK
     Route: 065
     Dates: start: 20250206
  2. LUTATHERA [Suspect]
     Active Substance: LUTETIUM OXODOTREOTIDE LU-177
     Dosage: UNK
     Route: 065
     Dates: start: 20250403
  3. LUTATHERA [Suspect]
     Active Substance: LUTETIUM OXODOTREOTIDE LU-177
     Dosage: UNK
     Route: 065
     Dates: start: 20250529

REACTIONS (18)
  - Neuroendocrine tumour [Fatal]
  - Malignant neoplasm progression [Fatal]
  - Dehydration [Fatal]
  - Somnolence [Fatal]
  - Acute kidney injury [Fatal]
  - Cachexia [Fatal]
  - Hyponatraemia [Fatal]
  - Nausea [Fatal]
  - Vomiting [Fatal]
  - General physical health deterioration [Fatal]
  - Abdominal distension [Fatal]
  - Intestinal obstruction [Fatal]
  - Hydronephrosis [Fatal]
  - Disorientation [Fatal]
  - Hypokalaemia [Unknown]
  - Hyponatraemia [Unknown]
  - Vomiting [Unknown]
  - Diarrhoea [Recovering/Resolving]

NARRATIVE: CASE EVENT DATE: 20250721
